FAERS Safety Report 21533243 (Version 1)
Quarter: 2022Q4

REPORT INFORMATION
  Report Type: Spontaneous
  Country: US (occurrence: None)
  Receive Date: 20221031
  Receipt Date: 20221031
  Transmission Date: 20230113
  Serious: Yes (Hospitalization)
  Sender: FDA-Public Use
  Company Number: None

PATIENT
  Sex: Female

DRUGS (2)
  1. TOLVAPTAN [Suspect]
     Active Substance: TOLVAPTAN
     Indication: Inappropriate antidiuretic hormone secretion
     Dosage: 15MG DAILY BY MOUTH
     Route: 048
     Dates: start: 202007
  2. PROCRIT [Suspect]
     Active Substance: ERYTHROPOIETIN
     Indication: Inappropriate antidiuretic hormone secretion
     Dosage: 20000UNITS ONCE PER WEEK SUB-QY;?
     Route: 058
     Dates: start: 201911

REACTIONS (1)
  - Rehabilitation therapy [None]
